FAERS Safety Report 10186183 (Version 2)
Quarter: 2014Q2

REPORT INFORMATION
  Report Type: Spontaneous
  Country: US (occurrence: US)
  Receive Date: 20140521
  Receipt Date: 20140521
  Transmission Date: 20141212
  Serious: Yes (Hospitalization)
  Sender: FDA-Public Use
  Company Number: US-B.I. PHARMACEUTICALS,INC./RIDGEFIELD-2013-BI-39146BP

PATIENT
  Sex: Female
  Weight: 70.31 kg

DRUGS (9)
  1. PRADAXA [Suspect]
     Indication: CEREBROVASCULAR ACCIDENT PROPHYLAXIS
     Dosage: 150 MG
     Route: 048
     Dates: start: 20110114, end: 20120518
  2. PRADAXA [Suspect]
     Indication: THROMBOSIS PROPHYLAXIS
  3. PRADAXA [Suspect]
     Indication: ATRIAL FIBRILLATION
  4. CYMBALTA [Concomitant]
     Indication: TRIGEMINAL NEURALGIA
     Dosage: 30 MG
     Route: 065
  5. SIMVASTATIN [Concomitant]
     Dosage: 40 MG
     Route: 065
  6. AMIODARONE [Concomitant]
     Dosage: 200 MG
     Route: 065
  7. LASIX [Concomitant]
     Indication: CARDIAC FAILURE CONGESTIVE
     Dosage: 40 MG
     Route: 065
  8. POTASSIUM CHLORIDE [Concomitant]
     Dosage: 40 MEQ
     Route: 065
  9. DIGOXIN [Concomitant]
     Dosage: 0.125 MG
     Route: 065

REACTIONS (2)
  - Upper gastrointestinal haemorrhage [Unknown]
  - Haemorrhagic anaemia [Unknown]
